FAERS Safety Report 8816049 (Version 1)
Quarter: 2012Q4

REPORT INFORMATION
  Report Type: 
  Country: GB (occurrence: GB)
  Receive Date: 20120928
  Receipt Date: 20120928
  Transmission Date: 20130627
  Serious: Yes (Other)
  Sender: FDA-Public Use
  Company Number: GB-PFIZER INC-2012236090

PATIENT

DRUGS (1)
  1. CHLORAMPHENICOL SODIUM SUCCINATE [Suspect]
     Indication: PNEUMONIA ASPIRATION
     Dosage: 1 g, UNK
     Route: 042
     Dates: start: 20120825, end: 20120904

REACTIONS (1)
  - Alanine aminotransferase increased [Unknown]
